FAERS Safety Report 24765533 (Version 1)
Quarter: 2024Q4

REPORT INFORMATION
  Report Type: Spontaneous
  Country: US (occurrence: None)
  Receive Date: 20241220
  Receipt Date: 20241220
  Transmission Date: 20250114
  Serious: No
  Sender: Public
  Company Number: None

PATIENT
  Sex: Female

DRUGS (2)
  1. OPSUMIT [Suspect]
     Active Substance: MACITENTAN
     Indication: Pulmonary arterial hypertension
     Dosage: FREQUENCY : DAILY;?
     Route: 048
     Dates: start: 202412
  2. ADEMPAS [Suspect]
     Active Substance: RIOCIGUAT

REACTIONS (4)
  - Abdominal distension [None]
  - Nausea [None]
  - Vomiting [None]
  - Treatment noncompliance [None]
